FAERS Safety Report 9133561 (Version 1)
Quarter: 2013Q1

REPORT INFORMATION
  Report Type: Spontaneous
  Country: US (occurrence: US)
  Receive Date: 20130124
  Receipt Date: 20130124
  Transmission Date: 20140127
  Serious: Yes (Hospitalization)
  Sender: FDA-Public Use
  Company Number: US-BRACCO-007884

PATIENT
  Sex: Male

DRUGS (1)
  1. MULTIHANCE [Suspect]
     Indication: DIAGNOSTIC PROCEDURE

REACTIONS (3)
  - Dyspnoea [Unknown]
  - Chest pain [Unknown]
  - Pruritus [Unknown]
